FAERS Safety Report 16627183 (Version 3)
Quarter: 2022Q4

REPORT INFORMATION
  Report Type: Spontaneous
  Country: US (occurrence: None)
  Receive Date: 20190724
  Receipt Date: 20221220
  Transmission Date: 20230113
  Serious: Yes (Other)
  Sender: FDA-Public Use
  Company Number: 2019SE10713

PATIENT
  Age: 12535 Day
  Sex: Male
  Weight: 136.1 kg

DRUGS (47)
  1. NEXIUM [Suspect]
     Active Substance: ESOMEPRAZOLE MAGNESIUM
     Indication: Gastrooesophageal reflux disease
     Route: 048
     Dates: start: 2005, end: 2018
  2. NEXIUM [Suspect]
     Active Substance: ESOMEPRAZOLE MAGNESIUM
     Indication: Gastrooesophageal reflux disease
     Route: 048
     Dates: start: 20051205, end: 20051227
  3. NEXIUM [Suspect]
     Active Substance: ESOMEPRAZOLE MAGNESIUM
     Indication: Gastrooesophageal reflux disease
     Route: 048
     Dates: start: 2005, end: 2007
  4. NEXIUM [Suspect]
     Active Substance: ESOMEPRAZOLE MAGNESIUM
     Indication: Gastrooesophageal reflux disease
     Route: 048
     Dates: start: 20051205, end: 20051227
  5. DEXILANT [Suspect]
     Active Substance: DEXLANSOPRAZOLE
     Indication: Gastrooesophageal reflux disease
     Route: 065
     Dates: start: 2005, end: 2018
  6. DEXILANT [Suspect]
     Active Substance: DEXLANSOPRAZOLE
     Indication: Gastrooesophageal reflux disease
     Route: 065
     Dates: start: 2015, end: 2019
  7. DEXILANT [Suspect]
     Active Substance: DEXLANSOPRAZOLE
     Indication: Gastrooesophageal reflux disease
     Route: 065
  8. DEXILANT [Suspect]
     Active Substance: DEXLANSOPRAZOLE
     Indication: Gastrooesophageal reflux disease
     Route: 048
     Dates: start: 20160211
  9. DEXILANT [Suspect]
     Active Substance: DEXLANSOPRAZOLE
     Indication: Gastrooesophageal reflux disease
     Route: 065
     Dates: start: 20150709
  10. DEXILANT [Suspect]
     Active Substance: DEXLANSOPRAZOLE
     Indication: Gastrooesophageal reflux disease
     Route: 048
     Dates: start: 20170518
  11. PROTONIX [Suspect]
     Active Substance: PANTOPRAZOLE SODIUM
     Indication: Gastrooesophageal reflux disease
     Route: 065
     Dates: start: 2005, end: 2018
  12. PROTONIX [Suspect]
     Active Substance: PANTOPRAZOLE SODIUM
     Indication: Gastrooesophageal reflux disease
     Route: 065
     Dates: start: 2007, end: 2011
  13. PROTONIX [Suspect]
     Active Substance: PANTOPRAZOLE SODIUM
     Indication: Gastrooesophageal reflux disease
     Route: 065
     Dates: start: 20071105
  14. PROTONIX [Suspect]
     Active Substance: PANTOPRAZOLE SODIUM
     Indication: Gastrooesophageal reflux disease
     Dosage: GENERIC
     Route: 065
     Dates: start: 20080714, end: 20151217
  15. PROTONIX [Suspect]
     Active Substance: PANTOPRAZOLE SODIUM
     Indication: Gastrooesophageal reflux disease
     Route: 065
     Dates: start: 20071105
  16. VITAMIN D3 [Concomitant]
     Active Substance: CHOLECALCIFEROL
  17. LINZESS [Concomitant]
     Active Substance: LINACLOTIDE
     Indication: Irritable bowel syndrome
     Route: 065
     Dates: start: 2015
  18. SIMVASTATIN [Concomitant]
     Active Substance: SIMVASTATIN
     Indication: Blood cholesterol
     Route: 065
     Dates: start: 2012
  19. TRICOR [Concomitant]
     Active Substance: FENOFIBRATE
     Indication: Blood cholesterol
     Route: 065
     Dates: start: 20120208, end: 20121023
  20. CEPHALEXIN [Concomitant]
     Active Substance: CEPHALEXIN
     Indication: Antibiotic therapy
     Route: 065
     Dates: start: 20070810, end: 20160211
  21. MIDODRINE [Concomitant]
     Active Substance: MIDODRINE
     Indication: Blood pressure abnormal
     Route: 065
     Dates: start: 20090603
  22. MECLIZINE [Concomitant]
     Active Substance: MECLIZINE HYDROCHLORIDE
     Indication: Antiallergic therapy
     Route: 065
     Dates: start: 20120208, end: 20121008
  23. ESCITALOPRAM [Concomitant]
     Active Substance: ESCITALOPRAM OXALATE
     Indication: Serotonin syndrome
     Route: 065
     Dates: start: 20121023
  24. VITAMIN D2 [Concomitant]
     Active Substance: ERGOCALCIFEROL
     Indication: Excessive dietary supplement intake
     Route: 065
     Dates: start: 20130325, end: 20151210
  25. CIPRODEX [Concomitant]
     Active Substance: CIPROFLOXACIN HYDROCHLORIDE\DEXAMETHASONE
     Indication: Ear infection
     Dates: start: 20130325, end: 20140115
  26. CITALOPRAM [Concomitant]
     Active Substance: CITALOPRAM HYDROBROMIDE
     Indication: Serotonin syndrome
     Route: 065
     Dates: start: 20150319
  27. NASONEX [Concomitant]
     Active Substance: MOMETASONE FUROATE
     Indication: Sinus congestion
     Route: 065
     Dates: start: 20130722
  28. PHENTERMINE [Concomitant]
     Active Substance: PHENTERMINE
     Indication: Weight decreased
     Route: 065
     Dates: start: 20150326, end: 20151113
  29. BUPROPION [Concomitant]
     Active Substance: BUPROPION
     Indication: Smoking cessation therapy
     Route: 065
     Dates: start: 20150326, end: 20151113
  30. BUPROPION [Concomitant]
     Active Substance: BUPROPION
     Indication: Depression
     Route: 065
     Dates: start: 20150326, end: 20151113
  31. HYDROXYZINE [Concomitant]
     Active Substance: HYDROXYZINE HYDROCHLORIDE
     Indication: Antiallergic therapy
     Route: 065
     Dates: start: 20150514
  32. METHYLPREDNISOLONE [Concomitant]
     Active Substance: METHYLPREDNISOLONE
     Indication: Inflammation
     Route: 065
     Dates: start: 20141121, end: 20150717
  33. PREDNISONE [Concomitant]
     Active Substance: PREDNISONE
     Indication: Inflammation
     Route: 048
     Dates: start: 20170402
  34. FINASTERIDE [Concomitant]
     Active Substance: FINASTERIDE
     Indication: Urinary retention
     Route: 065
     Dates: start: 2017
  35. TAMSULOSIN [Concomitant]
     Active Substance: TAMSULOSIN
     Indication: Urinary retention
     Route: 065
     Dates: start: 2017
  36. SERTRALINE [Concomitant]
     Active Substance: SERTRALINE HYDROCHLORIDE
     Indication: Serotonin syndrome
     Route: 065
     Dates: start: 2017
  37. TRAMADOL [Concomitant]
     Active Substance: TRAMADOL
     Indication: Pain
     Route: 065
     Dates: start: 20100104
  38. AZITHROMYCIN [Concomitant]
     Active Substance: AZITHROMYCIN
     Route: 048
     Dates: start: 20081006
  39. IBUPROFEN [Concomitant]
     Active Substance: IBUPROFEN
     Route: 048
     Dates: start: 20050912, end: 20051003
  40. LIPITOR [Concomitant]
     Active Substance: ATORVASTATIN CALCIUM
     Route: 048
     Dates: start: 20040921, end: 20050120
  41. PROZAC [Concomitant]
     Active Substance: FLUOXETINE HYDROCHLORIDE
     Route: 048
     Dates: start: 20040921, end: 20050120
  42. ULTRAM [Concomitant]
     Active Substance: TRAMADOL HYDROCHLORIDE
     Route: 048
     Dates: start: 20040921, end: 20050120
  43. OMNICEF [Concomitant]
     Active Substance: CEFDINIR
     Route: 048
     Dates: start: 20040921, end: 20050120
  44. MIDODRIN [Concomitant]
     Route: 048
     Dates: start: 20040921, end: 20050120
  45. HYDROCHLOROTHIAZIDE [Concomitant]
     Active Substance: HYDROCHLOROTHIAZIDE
  46. TRAZODONE [Concomitant]
     Active Substance: TRAZODONE HYDROCHLORIDE
  47. CALCIUM OXALATE [Concomitant]

REACTIONS (5)
  - Chronic kidney disease [Not Recovered/Not Resolved]
  - Renal failure [Not Recovered/Not Resolved]
  - Chronic kidney disease-mineral and bone disorder [Unknown]
  - Nephrogenic anaemia [Unknown]
  - Rebound acid hypersecretion [Unknown]

NARRATIVE: CASE EVENT DATE: 20160916
